FAERS Safety Report 24805670 (Version 2)
Quarter: 2025Q1

REPORT INFORMATION
  Report Type: Report from Study
  Country: CL (occurrence: CL)
  Receive Date: 20250103
  Receipt Date: 20250204
  Transmission Date: 20250409
  Serious: Yes (Other)
  Sender: JOHNSON AND JOHNSON
  Company Number: CL-JNJFOC-20241278938

PATIENT
  Age: 38 Year
  Sex: Female

DRUGS (1)
  1. SIMPONI [Suspect]
     Active Substance: GOLIMUMAB
     Indication: Rheumatoid arthritis
     Route: 058
     Dates: start: 20241111, end: 20241216

REACTIONS (5)
  - Coeliac disease [Unknown]
  - Alopecia [Unknown]
  - Influenza [Unknown]
  - Immune system disorder [Unknown]
  - Contusion [Unknown]

NARRATIVE: CASE EVENT DATE: 20241101
